FAERS Safety Report 9832863 (Version 4)
Quarter: 2014Q3

REPORT INFORMATION
  Report Type: Spontaneous
  Country: US (occurrence: US)
  Receive Date: 20140121
  Receipt Date: 20140725
  Transmission Date: 20150326
  Serious: Yes (Death, Hospitalization, Other)
  Sender: FDA-Public Use
  Company Number: US-BAYER-2014-010403

PATIENT
  Age: 55 Year
  Sex: Female
  Weight: 91 kg

DRUGS (1)
  1. GADAVIST [Suspect]
     Active Substance: GADOBUTROL
     Indication: NUCLEAR MAGNETIC RESONANCE IMAGING
     Dosage: 9 ML MANUALLY INJECTED BY SLOW PUSH OVER 1 MINUTE
     Route: 042
     Dates: start: 20140117, end: 20140117

REACTIONS (5)
  - Malaise [None]
  - Unresponsive to stimuli [None]
  - Cardiac arrest [Fatal]
  - Dysgeusia [None]
  - Eye movement disorder [None]

NARRATIVE: CASE EVENT DATE: 20140117
